FAERS Safety Report 6693780-6 (Version None)
Quarter: 2010Q2

REPORT INFORMATION
  Report Type: 
  Country: None (occurrence: None)
  Receive Date: 20100423
  Receipt Date: 20100412
  Transmission Date: 20101027
  Serious: Yes (Other)
  Sender: FDA-Public Use
  Company Number: US-PFIZER INC-2010048142

PATIENT
  Sex: Female
  Weight: 63.502 kg

DRUGS (8)
  1. CHANTIX [Suspect]
     Indication: SMOKING CESSATION THERAPY
     Dosage: FREQUENCY: 2X/DAY,
     Route: 048
     Dates: start: 20100101
  2. DILAUDID [Concomitant]
     Indication: PAIN
     Dosage: UNK
  3. RITALIN [Concomitant]
     Indication: PAIN
     Dosage: UNK
  4. OXYCODONE HCL [Concomitant]
     Indication: PAIN
     Dosage: UNK
  5. MORPHINE [Concomitant]
     Indication: PAIN
  6. DIAZEPAM [Concomitant]
     Indication: PAIN
     Dosage: UNK
  7. TOPAMAX [Concomitant]
     Dosage: UNK
  8. ESOMEPRAZOLE [Concomitant]
     Dosage: UNK

REACTIONS (1)
  - CONFUSIONAL STATE [None]
